FAERS Safety Report 4274494-9 (Version None)
Quarter: 2004Q1

REPORT INFORMATION
  Report Type: 
  Country: None (occurrence: None)
  Receive Date: 20040115
  Receipt Date: 20031216
  Transmission Date: 20041129
  Serious: Yes (Hospitalization)
  Sender: FDA-Public Use
  Company Number: 6923

PATIENT
  Age: 77 Year
  Sex: Male

DRUGS (2)
  1. LEUCOVORIN CALCIUM [Suspect]
     Indication: COLON CANCER
     Dosage: 75 MG PO
     Route: 048
     Dates: start: 20031030, end: 20031127
  2. TEGAFUR URACIL [Suspect]
     Indication: COLON CANCER
     Dosage: 300 MG PO
     Route: 048
     Dates: start: 20031030, end: 20031127

REACTIONS (2)
  - JAUNDICE [None]
  - THROMBOCYTOPENIA [None]
